FAERS Safety Report 14758243 (Version 2)
Quarter: 2018Q2

REPORT INFORMATION
  Report Type: Report from Study
  Country: None (occurrence: US)
  Receive Date: 20180413
  Receipt Date: 20180510
  Transmission Date: 20180711
  Serious: Yes (Other)
  Sender: FDA-Public Use
  Company Number: US-ABBVIE-18P-163-2319326-00

PATIENT
  Age: 68 Year
  Sex: Female
  Weight: 59.93 kg

DRUGS (14)
  1. AMLODIPINE BESYLATE. [Concomitant]
     Active Substance: AMLODIPINE BESYLATE
     Indication: HYPERTENSION
     Dates: start: 20171219
  2. VENCLEXTA [Suspect]
     Active Substance: VENETOCLAX
     Dosage: 1 WEEK
     Route: 048
     Dates: start: 2017, end: 20180108
  3. NORVASC [Concomitant]
     Active Substance: AMLODIPINE BESYLATE
     Indication: PRODUCT USED FOR UNKNOWN INDICATION
  4. VENCLEXTA [Suspect]
     Active Substance: VENETOCLAX
     Dosage: 1 WEEK
     Route: 048
     Dates: start: 20171116, end: 2017
  5. VENCLEXTA [Suspect]
     Active Substance: VENETOCLAX
     Dosage: 1 WEEK
     Route: 048
     Dates: start: 20180108
  6. LANTUS [Concomitant]
     Active Substance: INSULIN GLARGINE
     Indication: DIABETES MELLITUS
     Dosage: TWICE DAILY 25 AM AND 45  EVENING
  7. BABY ASPIRIN [Concomitant]
     Active Substance: ASPIRIN
     Indication: PRODUCT USED FOR UNKNOWN INDICATION
  8. FERROUS SULFATE. [Concomitant]
     Active Substance: FERROUS SULFATE
     Indication: PRODUCT USED FOR UNKNOWN INDICATION
  9. VENCLEXTA [Suspect]
     Active Substance: VENETOCLAX
     Route: 048
     Dates: start: 201803
  10. VENCLEXTA [Suspect]
     Active Substance: VENETOCLAX
     Indication: CHRONIC LYMPHOCYTIC LEUKAEMIA
     Route: 048
     Dates: end: 201803
  11. EYE DROPS [Concomitant]
     Active Substance: UNSPECIFIED INGREDIENT
     Indication: PRODUCT USED FOR UNKNOWN INDICATION
     Dates: start: 20171211
  12. VENCLEXTA [Suspect]
     Active Substance: VENETOCLAX
     Dosage: 1 WEEK
     Route: 048
     Dates: start: 2017, end: 2017
  13. VENCLEXTA [Suspect]
     Active Substance: VENETOCLAX
     Dosage: 1 WEEK
     Route: 048
     Dates: start: 2017, end: 2017
  14. VENCLEXTA [Suspect]
     Active Substance: VENETOCLAX
     Dosage: 1 WEEK
     Route: 048
     Dates: start: 2017, end: 2017

REACTIONS (3)
  - Infusion [Unknown]
  - Therapy cessation [Recovered/Resolved]
  - Thrombocytopenia [Recovered/Resolved]

NARRATIVE: CASE EVENT DATE: 20171230
